FAERS Safety Report 19719534 (Version 1)
Quarter: 2021Q3

REPORT INFORMATION
  Report Type: Spontaneous
  Country: US (occurrence: US)
  Receive Date: 20210818
  Receipt Date: 20210818
  Transmission Date: 20211014
  Serious: Yes (Hospitalization, Other)
  Sender: FDA-Public Use
  Company Number: US-BRISTOL-MYERS SQUIBB COMPANY-BMS-2021-079961

PATIENT
  Age: 78 Year
  Sex: Female
  Weight: 60.78 kg

DRUGS (11)
  1. AMIODARONE [Concomitant]
     Active Substance: AMIODARONE
     Indication: PRODUCT USED FOR UNKNOWN INDICATION
     Dosage: 200 MG TABLET ONE DAILY, EVERY 28 DAYS
     Route: 065
  2. SINGULAIR [Concomitant]
     Active Substance: MONTELUKAST SODIUM
     Indication: HYPERSENSITIVITY
     Dosage: 10 MILLIGRAM, QD
     Route: 065
  3. ELIQUIS [Suspect]
     Active Substance: APIXABAN
     Dosage: 2.5 MILLIGRAM, BID
     Route: 048
     Dates: start: 20210813
  4. ESTRADIOL;PROGESTERONE [Concomitant]
     Indication: BONE DISORDER
     Dosage: 0.55 MG AND 150 MG PROGESTERONE TAKEN EVERY MON/WED/FRI
     Route: 065
  5. METOPROLOL TARTRATE. [Concomitant]
     Active Substance: METOPROLOL TARTRATE
     Indication: PRODUCT USED FOR UNKNOWN INDICATION
     Dosage: 50 MILLIGRAM, BID
     Route: 065
  6. XELODA [Concomitant]
     Active Substance: CAPECITABINE
     Indication: PRODUCT USED FOR UNKNOWN INDICATION
     Dosage: 500 MG 1 BY MOUTH TWICE DAILY FOR 14 DAYS THEN OFF FOR 6 WEEKS
     Route: 048
  7. ELIQUIS [Suspect]
     Active Substance: APIXABAN
     Indication: CEREBROVASCULAR ACCIDENT PROPHYLAXIS
     Dosage: 5 MILLIGRAM, BID
     Route: 048
     Dates: start: 202012, end: 20210810
  8. ACETAMINOPHEN. [Concomitant]
     Active Substance: ACETAMINOPHEN
     Indication: PAIN
     Dosage: UNK
     Route: 065
  9. LANREOTIDE [Concomitant]
     Active Substance: LANREOTIDE
     Indication: NEOPLASM MALIGNANT
     Dosage: 90 MG SQ SHOT
     Route: 065
  10. MAGNESIUM [Concomitant]
     Active Substance: MAGNESIUM
     Indication: PRODUCT USED FOR UNKNOWN INDICATION
     Dosage: 64 MILLIGRAM, QD
     Route: 065
  11. VITAMIN D3 [Concomitant]
     Active Substance: CHOLECALCIFEROL
     Indication: PRODUCT USED FOR UNKNOWN INDICATION
     Dosage: 10000 UNIT TABLET M/W/F
     Route: 065

REACTIONS (5)
  - Hip fracture [Unknown]
  - Breast haemorrhage [Unknown]
  - Fall [Unknown]
  - Weight decreased [Unknown]
  - Soft tissue haemorrhage [Unknown]

NARRATIVE: CASE EVENT DATE: 20210219
